FAERS Safety Report 4931417-4 (Version None)
Quarter: 2006Q1

REPORT INFORMATION
  Report Type: 
  Country: None (occurrence: None)
  Receive Date: 20060228
  Receipt Date: 20060215
  Transmission Date: 20060701
  Serious: Yes (Other)
  Sender: FDA-Public Use
  Company Number: 2006024553

PATIENT
  Age: 76 Year
  Sex: Male
  Weight: 82.1011 kg

DRUGS (5)
  1. GEODON [Suspect]
     Indication: DEPRESSION
     Dosage: 20 MG (20 MG, 1 IN 1 D), ORAL
     Route: 048
     Dates: start: 20051001, end: 20051201
  2. GLUCOPHAGE [Concomitant]
  3. VITAMIN E [Concomitant]
  4. SAW PALMETTO (SAW PALMETTO) [Concomitant]
  5. SELENIUM (SELENIUM) [Concomitant]

REACTIONS (5)
  - BALANCE DISORDER [None]
  - BODY HEIGHT DECREASED [None]
  - CEREBROVASCULAR ACCIDENT [None]
  - DEMENTIA ALZHEIMER'S TYPE [None]
  - FALL [None]
